FAERS Safety Report 17813134 (Version 2)
Quarter: 2020Q2

REPORT INFORMATION
  Report Type: Report from Study
  Country: KR (occurrence: KR)
  Receive Date: 20200521
  Receipt Date: 20200526
  Transmission Date: 20200714
  Serious: Yes (Death)
  Sender: FDA-Public Use
  Company Number: KR-AMERICAN REGENT INC-2020001037

PATIENT
  Age: 81 Year
  Sex: Female
  Weight: 51.3 kg

DRUGS (13)
  1. FERINJECT [Suspect]
     Active Substance: FERRIC CARBOXYMALTOSE
     Indication: ANAEMIA
     Dosage: 100 MG, ONCE
     Route: 042
     Dates: start: 20200330, end: 20200330
  2. CISPLATIN. [Concomitant]
     Active Substance: CISPLATIN
     Indication: CHEMOTHERAPY
     Dosage: UNK
     Route: 065
  3. VANCOCIN CP [Concomitant]
     Indication: INFLAMMATION
  4. GEMCITABINE. [Concomitant]
     Active Substance: GEMCITABINE
     Indication: CHEMOTHERAPY
     Dosage: UNK
     Route: 065
  5. CRAVIT [Concomitant]
     Active Substance: LEVOFLOXACIN
     Indication: INFLAMMATION
  6. MORPHINE SULFATE. [Concomitant]
     Active Substance: MORPHINE SULFATE
     Indication: INFLAMMATION
  7. VANCOCIN CP [Concomitant]
     Indication: PAIN
     Dosage: 1 GRAM/VIAL (1 GM)
     Route: 065
     Dates: start: 20200429, end: 20200501
  8. FENTANYL. [Concomitant]
     Active Substance: FENTANYL
     Indication: PAIN
     Dosage: UNK
     Route: 062
     Dates: start: 20200429, end: 20200501
  9. TABAXIN [Concomitant]
     Active Substance: PIPERACILLIN SODIUM\TAZOBACTAM SODIUM
     Indication: INFLAMMATION
  10. CRAVIT [Concomitant]
     Active Substance: LEVOFLOXACIN
     Indication: PAIN
     Dosage: 500 MG/VIAL (500 MG)
     Route: 065
     Dates: start: 20200429, end: 20200501
  11. MORPHINE SULFATE. [Concomitant]
     Active Substance: MORPHINE SULFATE
     Indication: PAIN
     Dosage: 5 MG/AMPOULE (5 MG)
     Route: 065
     Dates: start: 20200429, end: 20200501
  12. FENTANYL. [Concomitant]
     Active Substance: FENTANYL
     Indication: INFLAMMATION
  13. TABAXIN [Concomitant]
     Active Substance: PIPERACILLIN SODIUM\TAZOBACTAM SODIUM
     Indication: PAIN
     Dosage: 2.25 GRAM/VIAL (2.25 GRAM)
     Route: 065
     Dates: start: 20200429, end: 20200501

REACTIONS (2)
  - Cardiac arrest [Fatal]
  - Ventricular tachycardia [Fatal]

NARRATIVE: CASE EVENT DATE: 20200501
